FAERS Safety Report 16679284 (Version 1)
Quarter: 2019Q3

REPORT INFORMATION
  Report Type: Spontaneous
  Country: JP (occurrence: JP)
  Receive Date: 20190807
  Receipt Date: 20190807
  Transmission Date: 20191004
  Serious: Yes (Other)
  Sender: FDA-Public Use
  Company Number: JP-NAPPMUNDI-GBR-2019-0067850

PATIENT
  Sex: Male

DRUGS (1)
  1. NORSPAN [Suspect]
     Active Substance: BUPRENORPHINE
     Indication: BACK PAIN
     Dosage: 5 MCG, Q1H (STRENGTH 5MG)
     Route: 062

REACTIONS (4)
  - Hyperhidrosis [Unknown]
  - Blood glucose increased [Unknown]
  - Pyrexia [Unknown]
  - Feeling abnormal [Unknown]
